FAERS Safety Report 9591041 (Version 1)
Quarter: 2013Q4

REPORT INFORMATION
  Report Type: Spontaneous
  Country: US (occurrence: US)
  Receive Date: 20131003
  Receipt Date: 20131003
  Transmission Date: 20140711
  Serious: No
  Sender: FDA-Public Use
  Company Number: US-009507513-1309USA013232

PATIENT
  Sex: Female

DRUGS (2)
  1. COZAAR [Suspect]
     Route: 048
  2. ALENDRONIC ACID [Suspect]
     Dosage: 70 MG, UNK
     Route: 048

REACTIONS (4)
  - Osteoporosis [Unknown]
  - Dyspepsia [Unknown]
  - Abdominal discomfort [Unknown]
  - Abdominal pain upper [Unknown]
